FAERS Safety Report 9741903 (Version 1)
Quarter: 2013Q4

REPORT INFORMATION
  Report Type: Spontaneous
  Country: US (occurrence: US)
  Receive Date: 20131210
  Receipt Date: 20131210
  Transmission Date: 20140711
  Serious: No
  Sender: FDA-Public Use
  Company Number: US-009507513-1312USA002995

PATIENT
  Age: 46 Year
  Sex: Female
  Weight: 52.15 kg

DRUGS (2)
  1. NUVARING [Suspect]
     Indication: CONTRACEPTION
     Dosage: UNK
     Route: 067
     Dates: start: 201212
  2. FLUOXETINE [Concomitant]
     Dosage: UNK

REACTIONS (2)
  - Breast tenderness [Unknown]
  - Inappropriate schedule of drug administration [Unknown]
